FAERS Safety Report 14765494 (Version 1)
Quarter: 2018Q2

REPORT INFORMATION
  Report Type: Spontaneous
  Country: US (occurrence: US)
  Receive Date: 20180416
  Receipt Date: 20180416
  Transmission Date: 20180711
  Serious: Yes (Hospitalization)
  Sender: FDA-Public Use
  Company Number: US-TEVA-2018-US-879285

PATIENT

DRUGS (1)
  1. FENTORA [Suspect]
     Active Substance: FENTANYL CITRATE
     Indication: PRODUCT USED FOR UNKNOWN INDICATION
     Route: 064

REACTIONS (6)
  - Foetal exposure during pregnancy [Unknown]
  - Crying [Unknown]
  - Tremor [Unknown]
  - Pain [Unknown]
  - Poor feeding infant [Unknown]
  - Drug withdrawal syndrome neonatal [Unknown]
